FAERS Safety Report 14014469 (Version 1)
Quarter: 2017Q3

REPORT INFORMATION
  Report Type: Spontaneous
  Country: US (occurrence: None)
  Receive Date: 20170926
  Receipt Date: 20170926
  Transmission Date: 20171128
  Serious: Yes (Death)
  Sender: FDA-Public Use
  Company Number: None

PATIENT
  Age: 62 Year
  Sex: Male

DRUGS (2)
  1. ENOXAPARIN 80MG/0.8ML PFS [Suspect]
     Active Substance: ENOXAPARIN SODIUM
     Indication: MALIGNANT NEOPLASM OF LACRIMAL GLAND
     Dosage: DOSE - 1 SYRINGE?FREQUENCY - Q 12 HR PER SCHEDU
     Route: 058
     Dates: start: 201706
  2. ENOXAPARIN 80MG/0.8ML PFS [Suspect]
     Active Substance: ENOXAPARIN SODIUM
     Indication: MALIGNANT NEOPLASM OF LACRIMAL DUCT
     Dosage: DOSE - 1 SYRINGE?FREQUENCY - Q 12 HR PER SCHEDU
     Route: 058
     Dates: start: 201706

REACTIONS (1)
  - Intestinal obstruction [None]

NARRATIVE: CASE EVENT DATE: 20170920
